FAERS Safety Report 15658228 (Version 4)
Quarter: 2023Q4

REPORT INFORMATION
  Report Type: Report from Study
  Country: US (occurrence: US)
  Receive Date: 20181126
  Receipt Date: 20231113
  Transmission Date: 20240109
  Serious: Yes (Hospitalization, Disabling)
  Sender: FDA-Public Use
  Company Number: US-TESAROUBC-US-2017TSO00078

PATIENT
  Age: 64 Year
  Sex: Female
  Weight: 89.2 kg

DRUGS (3)
  1. NIRAPARIB [Suspect]
     Active Substance: NIRAPARIB
     Indication: Ovarian cancer
     Dosage: 300 MG, QD
     Route: 048
     Dates: start: 20170127
  2. ENOXAPARIN [Concomitant]
     Active Substance: ENOXAPARIN
     Indication: Anticoagulant therapy
     Dosage: 30 MG, Q12H
     Route: 058
     Dates: start: 20170217, end: 20170217
  3. ENOXAPARIN [Concomitant]
     Active Substance: ENOXAPARIN
     Dosage: 80 MG, Q12H
     Route: 058
     Dates: start: 20170218, end: 20170219

REACTIONS (4)
  - Insomnia [Recovered/Resolved]
  - Mania [Recovered/Resolved]
  - Anxiety [Not Recovered/Not Resolved]
  - Psychotic disorder [Recovered/Resolved]

NARRATIVE: CASE EVENT DATE: 20170317
